FAERS Safety Report 4478828-1 (Version None)
Quarter: 2004Q4

REPORT INFORMATION
  Report Type: 
  Country: None (occurrence: None)
  Receive Date: 20041019
  Receipt Date: 20040901
  Transmission Date: 20050328
  Serious: Yes (Hospitalization, Other)
  Sender: FDA-Public Use
  Company Number: PHEH2004US09559

PATIENT
  Age: 25 Year
  Sex: Male

DRUGS (10)
  1. CLOZARIL [Suspect]
     Indication: PSYCHOTIC DISORDER
     Dosage: 500 MG, QHS
     Route: 048
     Dates: start: 20040805, end: 20040801
  2. CLOZARIL [Suspect]
     Dosage: 12.5 MG, BID
     Route: 048
     Dates: start: 20040824, end: 20040801
  3. CLOZARIL [Suspect]
     Dosage: 25 MG, BID
     Route: 048
     Dates: start: 20040801, end: 20040831
  4. PROLIXIN [Concomitant]
     Indication: PSYCHOTIC DISORDER
     Dosage: 10MG QAM + 20MG QPM
     Route: 048
     Dates: start: 20040715, end: 20040801
  5. SEROQUEL [Concomitant]
     Indication: PSYCHOTIC DISORDER
     Dosage: 400MG BID + 200MG QHS
     Route: 048
     Dates: start: 20040724, end: 20040802
  6. SEROQUEL [Concomitant]
     Dosage: 400MG QAM + 300MG QPM
     Dates: start: 20040803
  7. DEPAKOTE [Concomitant]
     Indication: AFFECTIVE DISORDER
     Dosage: 500 MG, BID
     Route: 048
     Dates: start: 20040726, end: 20040801
  8. DEPAKOTE [Concomitant]
     Dosage: 500MG QAM + 1000MGQPM
     Dates: start: 20040801
  9. ZYPREXA [Concomitant]
     Indication: PSYCHOTIC DISORDER
     Dosage: 10 MG, BID
     Route: 048
     Dates: start: 20040810, end: 20040801
  10. PROLIXIN DECANOATE [Concomitant]
     Dosage: 25MG, Q 2 WEEKS
     Dates: start: 20040719

REACTIONS (7)
  - LEUKOCYTOSIS [None]
  - MALAISE [None]
  - NAUSEA [None]
  - PYREXIA [None]
  - TACHYCARDIA [None]
  - VIRAL INFECTION [None]
  - VOMITING [None]
